FAERS Safety Report 5577375-3 (Version None)
Quarter: 2007Q4

REPORT INFORMATION
  Report Type: 
  Country: None (occurrence: None)
  Receive Date: 20071228
  Receipt Date: 20071217
  Transmission Date: 20080405
  Serious: Yes (Other)
  Sender: FDA-Public Use
  Company Number: US-PFIZER INC-2007107048

PATIENT
  Sex: Female
  Weight: 72.727 kg

DRUGS (6)
  1. CHANTIX [Suspect]
     Indication: SMOKING CESSATION THERAPY
     Dates: start: 20070716, end: 20070801
  2. VASERETIC [Concomitant]
  3. VYTORIN [Concomitant]
  4. WELLBUTRIN [Concomitant]
  5. ZOLOFT [Concomitant]
  6. ATIVAN [Concomitant]

REACTIONS (3)
  - ABDOMINAL PAIN UPPER [None]
  - ABNORMAL DREAMS [None]
  - WEIGHT DECREASED [None]
